FAERS Safety Report 14584404 (Version 1)
Quarter: 2018Q1

REPORT INFORMATION
  Report Type: Spontaneous
  Country: US (occurrence: US)
  Receive Date: 20180301
  Receipt Date: 20180301
  Transmission Date: 20180509
  Serious: Yes (Hospitalization)
  Sender: FDA-Public Use
  Company Number: US-CIPLA LTD.-2018US07110

PATIENT

DRUGS (15)
  1. PREDNISONE. [Suspect]
     Active Substance: PREDNISONE
     Indication: SARCOIDOSIS
     Dosage: UNK
     Route: 048
  2. METHYLPREDNISOLONE. [Suspect]
     Active Substance: METHYLPREDNISOLONE
     Indication: PNEUMONIA
     Dosage: UNK
     Route: 048
  3. MEROPENEM. [Suspect]
     Active Substance: MEROPENEM
     Indication: PYREXIA
  4. VANCOMYCIN [Suspect]
     Active Substance: VANCOMYCIN
     Indication: DYSPNOEA
  5. MEROPENEM. [Suspect]
     Active Substance: MEROPENEM
     Indication: COUGH
     Dosage: UNK
     Route: 065
  6. MEROPENEM. [Suspect]
     Active Substance: MEROPENEM
     Indication: DYSPNOEA
  7. PREDNISONE. [Suspect]
     Active Substance: PREDNISONE
     Dosage: 60 MG, UNK, DAILY
     Route: 065
  8. AMPHOTERICIN B. [Suspect]
     Active Substance: AMPHOTERICIN B
     Indication: CANDIDA INFECTION
     Dosage: UNK, DAY 20-53
     Route: 042
  9. LEVOFLOXACIN. [Suspect]
     Active Substance: LEVOFLOXACIN
     Indication: PNEUMONIA
     Dosage: UNK
     Route: 065
  10. VANCOMYCIN [Suspect]
     Active Substance: VANCOMYCIN
     Indication: PYREXIA
  11. MICAFUNGIN [Suspect]
     Active Substance: MICAFUNGIN
     Indication: CANDIDA INFECTION
     Dosage: 150 MG, UNK, DAILY(DAY 54 TO 59)
     Route: 042
  12. METHYLPREDNISOLONE. [Suspect]
     Active Substance: METHYLPREDNISOLONE
     Dosage: 40 MG, UNK
     Route: 042
  13. METHYLPREDNISOLONE. [Suspect]
     Active Substance: METHYLPREDNISOLONE
     Dosage: 125 MG, UNK
     Route: 042
  14. VANCOMYCIN [Suspect]
     Active Substance: VANCOMYCIN
     Indication: COUGH
     Dosage: UNK
     Route: 065
  15. FLUCONAZOLE. [Suspect]
     Active Substance: FLUCONAZOLE
     Indication: CANDIDA INFECTION
     Dosage: 400 MG, UNK, DAILY ( DAY 60 TO 281)
     Route: 048

REACTIONS (14)
  - Pneumonia aspiration [Recovered/Resolved]
  - Vomiting [Unknown]
  - Condition aggravated [Not Recovered/Not Resolved]
  - Sarcoidosis [Recovered/Resolved]
  - Ventricular tachycardia [Recovered/Resolved]
  - Acute kidney injury [Recovered/Resolved]
  - Candida infection [Recovered/Resolved]
  - Pulmonary granuloma [Recovered/Resolved]
  - Lung infiltration [Recovered/Resolved]
  - Pericardial effusion [Recovered/Resolved]
  - Respiratory acidosis [Recovered/Resolved]
  - Cardiac arrest [Recovered/Resolved]
  - Lymphadenopathy [Recovered/Resolved]
  - Respiratory failure [Recovered/Resolved]
